FAERS Safety Report 19162477 (Version 1)
Quarter: 2021Q2

REPORT INFORMATION
  Report Type: Spontaneous
  Country: US (occurrence: US)
  Receive Date: 20210420
  Receipt Date: 20210420
  Transmission Date: 20210717
  Serious: No
  Sender: FDA-Public Use
  Company Number: US-GLAXOSMITHKLINE-USCH2021020639

PATIENT
  Age: 57 Year
  Sex: Female

DRUGS (1)
  1. VOLTAREN ARTHRITIS PAIN [Suspect]
     Active Substance: DICLOFENAC SODIUM
     Indication: ARTHRITIS
     Dosage: UNK

REACTIONS (4)
  - Vision blurred [Unknown]
  - Product administered at inappropriate site [Recovering/Resolving]
  - Accidental exposure to product [Unknown]
  - Pruritus [Unknown]

NARRATIVE: CASE EVENT DATE: 20210416
